FAERS Safety Report 5381822-X (Version None)
Quarter: 2007Q3

REPORT INFORMATION
  Report Type: 
  Country: None (occurrence: None)
  Receive Date: 20070709
  Receipt Date: 20070627
  Transmission Date: 20080115
  Serious: Yes (Hospitalization)
  Sender: FDA-Public Use
  Company Number: GB-AMGEN-US145566

PATIENT
  Sex: Male
  Weight: 73 kg

DRUGS (5)
  1. ENBREL [Suspect]
     Indication: SPONDYLOARTHROPATHY
     Route: 058
     Dates: start: 20040301, end: 20050801
  2. ENBREL [Suspect]
     Indication: ANKYLOSING SPONDYLITIS
  3. INDOMETHACIN [Concomitant]
     Dosage: UNKNOWN
  4. RANITIDINE [Concomitant]
     Dosage: UNKNOWN
  5. ARCOXIA [Concomitant]
     Indication: RADICULAR PAIN
     Dosage: 90 MG EVERY 1 PRN
     Route: 048
     Dates: start: 20040101

REACTIONS (2)
  - DEMYELINATION [None]
  - MYELITIS [None]
